FAERS Safety Report 5143751-6 (Version None)
Quarter: 2006Q4

REPORT INFORMATION
  Report Type: 
  Country: None (occurrence: None)
  Receive Date: 20061106
  Receipt Date: 20061026
  Transmission Date: 20070319
  Serious: Yes (Other)
  Sender: FDA-Public Use
  Company Number: IT-JNJFOC-20061006288

PATIENT
  Age: 43 Year
  Sex: Male

DRUGS (3)
  1. REMICADE [Suspect]
     Indication: PSORIASIS
     Route: 042
  2. REMICADE [Suspect]
     Indication: PSORIATIC ARTHROPATHY
     Dosage: 1ST AND 2ND INFUSIONS EVERY 15 DAYS, 3RD AND 4TH MONTHLY.
     Route: 042
  3. METHOTREXATE [Concomitant]
     Route: 048

REACTIONS (2)
  - BENCE JONES PROTEINURIA [None]
  - BLOOD IMMUNOGLOBULIN G INCREASED [None]
